FAERS Safety Report 7792323-3 (Version None)
Quarter: 2011Q4

REPORT INFORMATION
  Report Type: 
  Country: None (occurrence: None)
  Receive Date: 20111003
  Receipt Date: 20110928
  Transmission Date: 20120403
  Serious: Yes (Death, Other)
  Sender: FDA-Public Use
  Company Number: PHHY2011IE53758

PATIENT
  Sex: Male

DRUGS (4)
  1. MORPHINE SULFATE [Concomitant]
  2. AFINITOR [Suspect]
     Indication: RENAL CELL CARCINOMA
     Dosage: 10 MG,DAILY
     Route: 048
     Dates: start: 20110603
  3. MORPHINE SULFATE [Concomitant]
  4. MOVIPREP [Concomitant]

REACTIONS (4)
  - NEOPLASM PROGRESSION [None]
  - RASH MACULAR [None]
  - NEOPLASM MALIGNANT [None]
  - RASH PRURITIC [None]
